FAERS Safety Report 19933515 (Version 1)
Quarter: 2021Q4

REPORT INFORMATION
  Report Type: Spontaneous
  Country: US (occurrence: US)
  Receive Date: 20211008
  Receipt Date: 20211008
  Transmission Date: 20220303
  Serious: Yes (Other)
  Sender: FDA-Public Use
  Company Number: US-BAYER-2021A226683

PATIENT
  Age: 36 Year
  Sex: Female

DRUGS (1)
  1. MIRENA [Suspect]
     Active Substance: LEVONORGESTREL
     Indication: Heavy menstrual bleeding
     Dosage: 20 ?G, CONT
     Route: 015
     Dates: start: 20210406, end: 20210408

REACTIONS (5)
  - Device expulsion [Recovered/Resolved]
  - Genital haemorrhage [Not Recovered/Not Resolved]
  - Chest pain [None]
  - Panic attack [None]
  - Anxiety [None]

NARRATIVE: CASE EVENT DATE: 20210401
